FAERS Safety Report 25076253 (Version 1)
Quarter: 2025Q1

REPORT INFORMATION
  Report Type: Report from Study
  Country: CA (occurrence: CA)
  Receive Date: 20250313
  Receipt Date: 20250313
  Transmission Date: 20250408
  Serious: Yes (Hospitalization)
  Sender: EISAI
  Company Number: CA-Eisai-EC-2025-185779

PATIENT
  Age: 72 Year
  Sex: Female

DRUGS (11)
  1. LENVIMA [Suspect]
     Active Substance: LENVATINIB
     Indication: Endometrial cancer
     Dates: start: 20210427, end: 20210517
  2. LENVIMA [Suspect]
     Active Substance: LENVATINIB
     Dates: start: 20210518, end: 202205
  3. LENVIMA [Suspect]
     Active Substance: LENVATINIB
     Dates: end: 202212
  4. LENVIMA [Suspect]
     Active Substance: LENVATINIB
     Dosage: ALTERNATE BETWEEN 10 AND 14 MG
     Dates: start: 20221222, end: 20230902
  5. LENVIMA [Suspect]
     Active Substance: LENVATINIB
     Dates: start: 20230903, end: 202309
  6. LENVIMA [Suspect]
     Active Substance: LENVATINIB
     Dates: start: 20230918, end: 20231005
  7. LENVIMA [Suspect]
     Active Substance: LENVATINIB
     Dates: start: 202310, end: 20231017
  8. LENVIMA [Suspect]
     Active Substance: LENVATINIB
     Dosage: 14 MG ALT. 10 MG
     Dates: start: 20231018, end: 20240206
  9. LENVIMA [Suspect]
     Active Substance: LENVATINIB
     Dates: start: 20240207, end: 2024
  10. LENVIMA [Suspect]
     Active Substance: LENVATINIB
     Dates: start: 202404, end: 2024
  11. PEMBROLIZUMAB [Concomitant]
     Active Substance: PEMBROLIZUMAB
     Indication: Endometrial cancer
     Dates: end: 202109

REACTIONS (1)
  - Renal impairment [Not Recovered/Not Resolved]

NARRATIVE: CASE EVENT DATE: 20220708
